FAERS Safety Report 12381790 (Version 1)
Quarter: 2016Q2

REPORT INFORMATION
  Report Type: Spontaneous
  Country: US (occurrence: US)
  Receive Date: 20160518
  Receipt Date: 20160518
  Transmission Date: 20160815
  Serious: No
  Sender: FDA-Public Use
  Company Number: US-009507513-1605USA006140

PATIENT
  Sex: Female

DRUGS (1)
  1. RAGWITEK [Suspect]
     Active Substance: AMBROSIA ARTEMISIIFOLIA POLLEN
     Indication: HYPERSENSITIVITY
     Dosage: UNK, QD (12 AMB/1 DAILY)
     Route: 048

REACTIONS (3)
  - Urticaria [Recovered/Resolved]
  - Swollen tongue [Recovered/Resolved]
  - Ear pruritus [Recovered/Resolved]
